FAERS Safety Report 20322281 (Version 5)
Quarter: 2022Q1

REPORT INFORMATION
  Report Type: Spontaneous
  Country: PL (occurrence: PL)
  Receive Date: 20220111
  Receipt Date: 20220329
  Transmission Date: 20220423
  Serious: Yes (Hospitalization, Disabling, Other)
  Sender: FDA-Public Use
  Company Number: PL-TEVA-2021-PL-1996559

PATIENT
  Age: 83 Year
  Sex: Female
  Weight: 91 kg

DRUGS (111)
  1. RAMIPRIL [Interacting]
     Active Substance: RAMIPRIL
     Indication: Cardiac failure
     Dosage: 5 MILLIGRAM DAILY;
     Route: 048
  2. RAMIPRIL [Interacting]
     Active Substance: RAMIPRIL
     Dosage: 100 MILLIGRAM DAILY;
     Route: 065
  3. ATORVASTATIN [Interacting]
     Active Substance: ATORVASTATIN
     Indication: Product used for unknown indication
     Dosage: 20 MILLIGRAM DAILY;
     Route: 048
  4. METOPROLOL [Interacting]
     Active Substance: METOPROLOL
     Indication: Hypertension
     Dosage: 100 MILLIGRAM DAILY; 1-0-1
     Route: 065
  5. METOPROLOL [Interacting]
     Active Substance: METOPROLOL
     Dosage: 1-0-1/2 (DOSE REDUCE)
     Route: 065
  6. HYDROXYZINE HYDROCHLORIDE [Interacting]
     Active Substance: HYDROXYZINE HYDROCHLORIDE
     Indication: Product used for unknown indication
     Dosage: DOSAGE SCHEDULE: INTERMITTENTLY, ON AVERAGE 2 TIMES/24H (25 MG)
     Route: 065
  7. OMEPRAZOLE [Suspect]
     Active Substance: OMEPRAZOLE
     Indication: Product used for unknown indication
     Dosage: 40 MILLIGRAM DAILY;
     Route: 065
  8. OMEPRAZOLE [Suspect]
     Active Substance: OMEPRAZOLE
     Route: 065
  9. OMEPRAZOLE [Suspect]
     Active Substance: OMEPRAZOLE
     Dosage: 200 MILLIGRAM DAILY;
     Route: 065
  10. HYDROXYZINE [Interacting]
     Active Substance: HYDROXYZINE HYDROCHLORIDE
     Indication: Product used for unknown indication
     Route: 065
  11. HYDROXYZINE [Interacting]
     Active Substance: HYDROXYZINE HYDROCHLORIDE
     Dosage: ADHOC USUALLY
     Route: 065
  12. HYDROXYZINE [Interacting]
     Active Substance: HYDROXYZINE HYDROCHLORIDE
     Route: 065
  13. BETAHISTINE [Suspect]
     Active Substance: BETAHISTINE
     Indication: Product used for unknown indication
     Dosage: 24 MILLIGRAM DAILY;
     Route: 065
  14. BETAHISTINE [Suspect]
     Active Substance: BETAHISTINE
     Dosage: 40 MILLIGRAM DAILY;
     Route: 065
  15. BETAHISTINE [Suspect]
     Active Substance: BETAHISTINE
     Dosage: 40 MILLIGRAM DAILY;
     Route: 065
  16. ACETAMINOPHEN [Suspect]
     Active Substance: ACETAMINOPHEN
     Indication: Product used for unknown indication
     Dosage: 1000 MILLIGRAM DAILY;
     Route: 065
  17. ACETAMINOPHEN [Suspect]
     Active Substance: ACETAMINOPHEN
     Dosage: 40 MILLIGRAM DAILY;
     Route: 065
  18. ACETAMINOPHEN [Suspect]
     Active Substance: ACETAMINOPHEN
     Dosage: 40 MILLIGRAM DAILY;
     Route: 065
  19. METFORMIN [Suspect]
     Active Substance: METFORMIN HYDROCHLORIDE
     Indication: Type 2 diabetes mellitus
     Route: 048
  20. METFORMIN [Suspect]
     Active Substance: METFORMIN HYDROCHLORIDE
     Route: 065
  21. DONEPEZIL [Suspect]
     Active Substance: DONEPEZIL
     Indication: Product used for unknown indication
     Dosage: 5 MILLIGRAM DAILY;
     Route: 065
  22. TORSEMIDE [Suspect]
     Active Substance: TORSEMIDE
     Indication: Product used for unknown indication
     Dosage: 5 MILLIGRAM DAILY; QD/1-0-0
     Route: 065
  23. TORSEMIDE [Suspect]
     Active Substance: TORSEMIDE
     Route: 048
  24. CITALOPRAM [Interacting]
     Active Substance: CITALOPRAM HYDROBROMIDE
     Indication: Depression
     Dosage: 40 MILLIGRAM DAILY;
     Route: 048
  25. GLICLAZIDE [Interacting]
     Active Substance: GLICLAZIDE
     Indication: Product used for unknown indication
     Dosage: 180 MILLIGRAM DAILY;
     Route: 065
  26. ZOLPIDEM [Suspect]
     Active Substance: ZOLPIDEM TARTRATE
     Indication: Depression
     Dosage: 10 MILLIGRAM DAILY;
     Route: 065
  27. ZOLPIDEM [Suspect]
     Active Substance: ZOLPIDEM TARTRATE
     Dosage: 1 DOSAGE FORMS DAILY;
     Route: 065
  28. ZOLPIDEM [Suspect]
     Active Substance: ZOLPIDEM TARTRATE
     Dosage: 0-0-1
     Route: 065
  29. ZOLPIDEM [Suspect]
     Active Substance: ZOLPIDEM TARTRATE
     Dosage: 100 MILLIGRAM DAILY;
     Route: 065
  30. ZOLPIDEM [Suspect]
     Active Substance: ZOLPIDEM TARTRATE
     Dosage: 10 MILLIGRAM DAILY;
     Route: 065
  31. ZOLPIDEM [Suspect]
     Active Substance: ZOLPIDEM TARTRATE
     Route: 065
  32. ALPRAZOLAM [Suspect]
     Active Substance: ALPRAZOLAM
     Indication: Product used for unknown indication
     Route: 065
  33. ALPRAZOLAM [Suspect]
     Active Substance: ALPRAZOLAM
     Route: 065
  34. ALPRAZOLAM [Suspect]
     Active Substance: ALPRAZOLAM
     Route: 065
  35. ALPRAZOLAM [Suspect]
     Active Substance: ALPRAZOLAM
     Dosage: ADHOC USUALLY
     Route: 065
  36. ISOSORBIDE MONONITRATE [Suspect]
     Active Substance: ISOSORBIDE MONONITRATE
     Indication: Product used for unknown indication
     Dosage: 50 MILLIGRAM DAILY;
     Route: 065
  37. ISOSORBIDE MONONITRATE [Suspect]
     Active Substance: ISOSORBIDE MONONITRATE
     Route: 065
  38. ISOSORBIDE MONONITRATE [Suspect]
     Active Substance: ISOSORBIDE MONONITRATE
     Route: 065
  39. ALLOPURINOL [Suspect]
     Active Substance: ALLOPURINOL
     Indication: Product used for unknown indication
     Dosage: 100 MILLIGRAM DAILY;
     Route: 065
  40. ALLOPURINOL [Suspect]
     Active Substance: ALLOPURINOL
     Route: 065
  41. ALLOPURINOL [Suspect]
     Active Substance: ALLOPURINOL
     Route: 065
  42. FUROSEMIDE [Suspect]
     Active Substance: FUROSEMIDE
     Indication: Product used for unknown indication
     Route: 065
  43. FUROSEMIDE [Suspect]
     Active Substance: FUROSEMIDE
     Route: 065
  44. FUROSEMIDE [Suspect]
     Active Substance: FUROSEMIDE
     Route: 065
  45. FUROSEMIDE [Suspect]
     Active Substance: FUROSEMIDE
     Dosage: 1.5 DOSAGE FORMS DAILY;
     Route: 065
  46. SPIRONOLACTONE [Suspect]
     Active Substance: SPIRONOLACTONE
     Indication: Product used for unknown indication
     Dosage: 100 MILLIGRAM DAILY;
     Route: 065
  47. SPIRONOLACTONE [Suspect]
     Active Substance: SPIRONOLACTONE
     Route: 065
  48. SPIRONOLACTONE [Suspect]
     Active Substance: SPIRONOLACTONE
     Route: 065
  49. HYDROCHLOROTHIAZIDE [Suspect]
     Active Substance: HYDROCHLOROTHIAZIDE
     Indication: Product used for unknown indication
     Dosage: 25 MILLIGRAM DAILY;
     Route: 065
  50. HYDROCHLOROTHIAZIDE [Suspect]
     Active Substance: HYDROCHLOROTHIAZIDE
     Route: 065
  51. HYDROCHLOROTHIAZIDE [Suspect]
     Active Substance: HYDROCHLOROTHIAZIDE
     Route: 065
  52. HYDROCHLOROTHIAZIDE [Suspect]
     Active Substance: HYDROCHLOROTHIAZIDE
     Route: 065
  53. LEVOTHYROXINE SODIUM [Suspect]
     Active Substance: LEVOTHYROXINE SODIUM
     Indication: Product used for unknown indication
     Dosage: 100 MICROGRAM DAILY;
     Route: 065
  54. LEVOTHYROXINE SODIUM [Suspect]
     Active Substance: LEVOTHYROXINE SODIUM
     Dosage: 40 MILLIGRAM DAILY;
     Route: 065
  55. LEVOTHYROXINE SODIUM [Suspect]
     Active Substance: LEVOTHYROXINE SODIUM
     Dosage: 40 MILLIGRAM DAILY;
     Route: 065
  56. LEVOTHYROXINE SODIUM [Suspect]
     Active Substance: LEVOTHYROXINE SODIUM
     Dosage: 25 MILLIGRAM DAILY;
     Route: 065
  57. TRAMADOL HYDROCHLORIDE [Suspect]
     Active Substance: TRAMADOL HYDROCHLORIDE
     Indication: Pain
     Route: 065
  58. TRAMADOL HYDROCHLORIDE [Suspect]
     Active Substance: TRAMADOL HYDROCHLORIDE
     Dosage: 40 MILLIGRAM DAILY;
     Route: 065
  59. TRAMADOL HYDROCHLORIDE [Suspect]
     Active Substance: TRAMADOL HYDROCHLORIDE
     Dosage: 40 MILLIGRAM DAILY;
     Route: 065
  60. TRAMADOL HYDROCHLORIDE [Suspect]
     Active Substance: TRAMADOL HYDROCHLORIDE
     Dosage: 200 MILLIGRAM DAILY;
     Route: 065
  61. ALBUTEROL [Suspect]
     Active Substance: ALBUTEROL
     Indication: Product used for unknown indication
     Dosage: PRN
     Route: 065
  62. DABIGATRAN [Suspect]
     Active Substance: DABIGATRAN
     Indication: Product used for unknown indication
     Dosage: 220 MILLIGRAM DAILY;
     Route: 065
  63. DABIGATRAN [Suspect]
     Active Substance: DABIGATRAN
     Dosage: 40 MILLIGRAM DAILY;
     Route: 065
  64. DABIGATRAN [Suspect]
     Active Substance: DABIGATRAN
     Dosage: 40 MILLIGRAM DAILY;
     Route: 065
  65. POTASSIUM CHLORIDE [Suspect]
     Active Substance: POTASSIUM CHLORIDE
     Indication: Product used for unknown indication
     Dosage: 40 MILLIGRAM DAILY;
     Route: 065
  66. POTASSIUM CHLORIDE [Suspect]
     Active Substance: POTASSIUM CHLORIDE
     Dosage: 40 MILLIGRAM DAILY;
     Route: 065
  67. POTASSIUM CHLORIDE [Suspect]
     Active Substance: POTASSIUM CHLORIDE
     Dosage: 391 MG K+
     Route: 065
  68. DEXTROSE\NIKETHAMIDE [Suspect]
     Active Substance: DEXTROSE\NIKETHAMIDE
     Indication: Product used for unknown indication
     Dosage: 40 MILLIGRAM DAILY;
     Route: 065
  69. DEXTROSE\NIKETHAMIDE [Suspect]
     Active Substance: DEXTROSE\NIKETHAMIDE
     Dosage: 40 MILLIGRAM DAILY;
     Route: 065
  70. DEXTROSE\NIKETHAMIDE [Suspect]
     Active Substance: DEXTROSE\NIKETHAMIDE
     Dosage: 1.5MG+125MG
     Route: 065
  71. METOCLOPRAMIDE [Suspect]
     Active Substance: METOCLOPRAMIDE
     Indication: Constipation
     Dosage: INTERMITTENTLY IN CASE OF CONSTIPATION FOR MANY MONTHS
     Route: 065
  72. METOCLOPRAMIDE [Suspect]
     Active Substance: METOCLOPRAMIDE
     Dosage: PRN, ONGOING
     Route: 065
  73. BENSERAZIDE\LEVODOPA [Suspect]
     Active Substance: BENSERAZIDE\LEVODOPA
     Indication: Product used for unknown indication
     Dosage: 187.5 MILLIGRAM DAILY;
     Route: 065
  74. QUETIAPINE [Suspect]
     Active Substance: QUETIAPINE
     Indication: Product used for unknown indication
     Dosage: 25 MILLIGRAM DAILY;
     Route: 065
  75. NIKETHAMIDE [Suspect]
     Active Substance: NIKETHAMIDE
     Indication: Product used for unknown indication
     Dosage: INTERMITTENTLY
     Route: 065
  76. DENOSUMAB [Suspect]
     Active Substance: DENOSUMAB
     Indication: Product used for unknown indication
     Route: 065
  77. ZOLPIDEM [Suspect]
     Active Substance: ZOLPIDEM TARTRATE
     Indication: Depression
     Dosage: 10 MILLIGRAM DAILY;
     Route: 065
  78. ZOLPIDEM [Suspect]
     Active Substance: ZOLPIDEM TARTRATE
     Dosage: 1 DOSAGE FORMS DAILY;
     Route: 065
  79. ZOLPIDEM [Suspect]
     Active Substance: ZOLPIDEM TARTRATE
     Route: 065
  80. ZOLPIDEM [Suspect]
     Active Substance: ZOLPIDEM TARTRATE
     Dosage: 100 MILLIGRAM DAILY;
     Route: 065
  81. ZOLPIDEM [Suspect]
     Active Substance: ZOLPIDEM TARTRATE
     Dosage: 10 MILLIGRAM DAILY;
     Route: 065
  82. BETAHISTINE HYDROCHLORIDE [Suspect]
     Active Substance: BETAHISTINE HYDROCHLORIDE
     Indication: Product used for unknown indication
     Dosage: 24 MILLIGRAM DAILY;
     Route: 065
  83. CHOLECALCIFEROL [Suspect]
     Active Substance: CHOLECALCIFEROL
     Indication: Product used for unknown indication
     Dosage: 1 DOSAGE FORMS DAILY;
     Route: 065
  84. CITALOPRAM [Concomitant]
     Active Substance: CITALOPRAM HYDROBROMIDE
     Indication: Product used for unknown indication
  85. ZOLPIDEM [Interacting]
     Active Substance: ZOLPIDEM TARTRATE
     Indication: Product used for unknown indication
  86. ALPRAZOLAM [Concomitant]
     Active Substance: ALPRAZOLAM
     Indication: Product used for unknown indication
     Dosage: INTERMITTENTLY, ON AVERAGE 2 TIMES/24 H (0.5 MG)
  87. ISOSORBIDE MONONITRATE [Concomitant]
     Active Substance: ISOSORBIDE MONONITRATE
     Indication: Product used for unknown indication
     Dosage: INTERMITTENTLY, ON AVERAGE 1-2 TIMES/24H (50 MG)
  88. ALLOPURINOL [Concomitant]
     Active Substance: ALLOPURINOL
     Indication: Product used for unknown indication
     Dosage: 100 MILLIGRAM DAILY;
  89. RAMIPRIL [Concomitant]
     Active Substance: RAMIPRIL
     Indication: Product used for unknown indication
     Dosage: 5 MILLIGRAM DAILY; AT LEAST FOR 2 YEARS, STOPPED
  90. ATORVASTATIN [Concomitant]
     Active Substance: ATORVASTATIN
     Indication: Product used for unknown indication
     Dosage: 20 MILLIGRAM DAILY;
  91. FUROSEMIDE [Concomitant]
     Active Substance: FUROSEMIDE
     Indication: Product used for unknown indication
     Dosage: 3 TABLETS EVERY 2ND DAY
  92. SPIRONOLACTONE [Concomitant]
     Active Substance: SPIRONOLACTONE
     Indication: Product used for unknown indication
     Dosage: 100 MILLIGRAM DAILY; AT LEAST FOR 2 YEARS,?STOPPED
  93. HYDROCHLOROTHIAZIDE [Concomitant]
     Active Substance: HYDROCHLOROTHIAZIDE
     Indication: Product used for unknown indication
     Dosage: 25 MILLIGRAM DAILY;
  94. DABIGATRAN [Concomitant]
     Active Substance: DABIGATRAN
     Indication: Product used for unknown indication
     Dosage: 220 MILLIGRAM DAILY; AT LEAST FOR 2 YEARS?STOPPED
  95. GLICLAZIDE [Concomitant]
     Active Substance: GLICLAZIDE
     Indication: Product used for unknown indication
     Dosage: 180 MILLIGRAM DAILY;
  96. DEXTROSE [Concomitant]
     Active Substance: DEXTROSE
     Indication: Product used for unknown indication
     Dosage: INTERMITTENTLY
  97. NIKETHAMIDE [Concomitant]
     Active Substance: NIKETHAMIDE
     Indication: Product used for unknown indication
     Dosage: INTERMITTENTLY
  98. BETAHISTINE [Concomitant]
     Active Substance: BETAHISTINE
     Indication: Product used for unknown indication
     Dosage: 24 MILLIGRAM DAILY;
  99. POTASSIUM CHLORIDE [Concomitant]
     Active Substance: POTASSIUM CHLORIDE
     Indication: Product used for unknown indication
  100. TRAMADOL [Concomitant]
     Active Substance: TRAMADOL
     Indication: Product used for unknown indication
     Dosage: INTERMITTENTLY
  101. ACETAMINOPHEN [Concomitant]
     Active Substance: ACETAMINOPHEN
     Indication: Product used for unknown indication
     Dosage: 500 MILLIGRAM DAILY;
  102. OMEPRAZOLE [Concomitant]
     Active Substance: OMEPRAZOLE
     Indication: Product used for unknown indication
     Dosage: 40 MILLIGRAM DAILY;
  103. ALBUTEROL [Concomitant]
     Active Substance: ALBUTEROL
     Indication: Product used for unknown indication
     Dosage: INTERMITTENTLY
  104. METOCLOPRAMIDE [Concomitant]
     Active Substance: METOCLOPRAMIDE
     Indication: Constipation
     Dosage: INTERMITTENTLY IN CASE OF CONSTIPATION FOR MANY MONTHS (20 MG)
  105. LEVOTHYROXINE [Concomitant]
     Active Substance: LEVOTHYROXINE
     Indication: Product used for unknown indication
     Dosage: 100 MICROGRAM DAILY; AT LEAST FOR 2 YEARS?STOPPED
  106. METFORMIN [Concomitant]
     Active Substance: METFORMIN HYDROCHLORIDE
     Indication: Product used for unknown indication
  107. TORSEMIDE [Concomitant]
     Active Substance: TORSEMIDE
     Indication: Product used for unknown indication
  108. VORTIOXETINE [Concomitant]
     Active Substance: VORTIOXETINE
     Indication: Product used for unknown indication
  109. QUETIAPINE [Concomitant]
     Active Substance: QUETIAPINE
     Indication: Product used for unknown indication
  110. METOPROLOL [Concomitant]
     Active Substance: METOPROLOL
  111. HYDROXYZINE HYDROCHLORIDE [Concomitant]
     Active Substance: HYDROXYZINE HYDROCHLORIDE
     Indication: Product used for unknown indication

REACTIONS (33)
  - Dementia [Unknown]
  - Cognitive disorder [Unknown]
  - Mobility decreased [Unknown]
  - Fall [Unknown]
  - Osteoporosis [Unknown]
  - Parkinsonism [Unknown]
  - Urinary retention [Unknown]
  - Hyponatraemia [Unknown]
  - Hypoglycaemia [Recovered/Resolved]
  - Drug dependence [Unknown]
  - Depression [Unknown]
  - Hypotension [Unknown]
  - Syncope [Unknown]
  - Dizziness [Unknown]
  - Multiple drug therapy [Unknown]
  - Abdominal pain upper [Unknown]
  - Nausea [Unknown]
  - Constipation [Unknown]
  - Arthralgia [Unknown]
  - Pruritus [Unknown]
  - Insomnia [Unknown]
  - Melaena [Unknown]
  - Drug interaction [Unknown]
  - Peripheral circulatory failure [Unknown]
  - Muscle rigidity [Unknown]
  - Bradykinesia [Unknown]
  - Diabetes mellitus inadequate control [Unknown]
  - Sedation [Unknown]
  - Motor dysfunction [Unknown]
  - Off label use [Unknown]
  - Medication error [Unknown]
  - Drug ineffective [Unknown]
  - Dysuria [Unknown]
